FAERS Safety Report 24410685 (Version 1)
Quarter: 2024Q4

REPORT INFORMATION
  Report Type: Spontaneous
  Country: US (occurrence: US)
  Receive Date: 20241008
  Receipt Date: 20241008
  Transmission Date: 20250114
  Serious: Yes (Hospitalization, Other)
  Sender: SANOFI AVENTIS
  Company Number: US-SANOFI-02232751

PATIENT
  Age: 53 Year
  Sex: Female

DRUGS (3)
  1. LOVENOX [Suspect]
     Active Substance: ENOXAPARIN SODIUM
     Dosage: UNK
  2. DUPIXENT [Concomitant]
     Active Substance: DUPILUMAB
     Indication: Dermatitis atopic
     Dosage: UNK
  3. ACTHAR [Concomitant]
     Active Substance: CORTICOTROPIN
     Indication: Visual impairment
     Dosage: UNK

REACTIONS (4)
  - Cerebrovascular accident [Unknown]
  - Movement disorder [Unknown]
  - Pain [Unknown]
  - Irritable bowel syndrome [Unknown]
